FAERS Safety Report 12980800 (Version 3)
Quarter: 2016Q4

REPORT INFORMATION
  Report Type: Report from Study
  Country: None (occurrence: AR)
  Receive Date: 20161128
  Receipt Date: 20161228
  Transmission Date: 20170207
  Serious: Yes (Death, Hospitalization, Other)
  Sender: FDA-Public Use
  Company Number: AR-ABBVIE-16P-007-1793750-00

PATIENT
  Age: 82 Year
  Sex: Female

DRUGS (1)
  1. ZEMPLAR [Suspect]
     Active Substance: PARICALCITOL
     Indication: HYPERPARATHYROIDISM SECONDARY
     Route: 042
     Dates: start: 20150831

REACTIONS (3)
  - Coronary artery occlusion [Recovering/Resolving]
  - Chest pain [Recovering/Resolving]
  - Cardiopulmonary failure [Fatal]

NARRATIVE: CASE EVENT DATE: 20161109
